FAERS Safety Report 5654184-8 (Version None)
Quarter: 2008Q1

REPORT INFORMATION
  Report Type: 
  Country: None (occurrence: None)
  Receive Date: 20080306
  Receipt Date: 20070404
  Transmission Date: 20080703
  Serious: No
  Sender: FDA-Public Use
  Company Number: US-BOEHRINGER INGELHEIM GMBH, GERMANY-2007-BP-04678BP

PATIENT
  Sex: Male

DRUGS (4)
  1. FLOMAX [Suspect]
     Indication: BENIGN PROSTATIC HYPERPLASIA
     Route: 048
     Dates: start: 20070101
  2. SINESTERIDE [Concomitant]
  3. LIPITOR [Concomitant]
  4. HIGH BLOOD PRESSURE MED [Concomitant]
     Indication: HYPERTENSION

REACTIONS (2)
  - LIBIDO DECREASED [None]
  - SEMEN VOLUME DECREASED [None]
